FAERS Safety Report 18452025 (Version 1)
Quarter: 2020Q4

REPORT INFORMATION
  Report Type: Spontaneous
  Country: None (occurrence: US)
  Receive Date: 20201102
  Receipt Date: 20201102
  Transmission Date: 20210114
  Serious: Yes (Life-Threatening, Hospitalization, Other)
  Sender: FDA-Public Use
  Company Number: US-ORION CORPORATION ORION PHARMA-20_00011498

PATIENT
  Age: 25 Year
  Sex: Female

DRUGS (1)
  1. METHOTREXATE. [Suspect]
     Active Substance: METHOTREXATE
     Indication: UVEITIS
     Route: 065

REACTIONS (5)
  - Product use in unapproved indication [Unknown]
  - Immunodeficiency [Unknown]
  - Epstein-Barr virus associated lymphoma [Unknown]
  - Burkitt^s lymphoma [Unknown]
  - Ovarian mass [Unknown]
